FAERS Safety Report 7506291-2 (Version None)
Quarter: 2011Q2

REPORT INFORMATION
  Report Type: 
  Country: None (occurrence: None)
  Receive Date: 20110526
  Receipt Date: 20110512
  Transmission Date: 20111010
  Serious: Yes (Life-Threatening, Hospitalization)
  Sender: FDA-Public Use
  Company Number: FR-KINGPHARMUSA00001-K201100407

PATIENT
  Age: 53 Year
  Sex: Female

DRUGS (2)
  1. ALTACE [Suspect]
     Indication: HYPERTENSION
     Dosage: 5 MG, QD
     Route: 048
     Dates: start: 20100501, end: 20110213
  2. PRESOMEN [Concomitant]

REACTIONS (2)
  - LARYNGEAL OEDEMA [None]
  - ANAPHYLACTIC SHOCK [None]
